FAERS Safety Report 10750813 (Version 1)
Quarter: 2015Q1

REPORT INFORMATION
  Report Type: Spontaneous
  Country: US (occurrence: US)
  Receive Date: 20150130
  Receipt Date: 20150130
  Transmission Date: 20150721
  Serious: Yes (Other)
  Sender: FDA-Public Use
  Company Number: US-BAYER-2015-013874

PATIENT
  Age: 35 Year
  Sex: Female

DRUGS (1)
  1. MIRENA [Suspect]
     Active Substance: LEVONORGESTREL
     Indication: CONTRACEPTION
     Dosage: 20 MCG/24HR, CONT
     Route: 015
     Dates: start: 20091207, end: 20150120

REACTIONS (5)
  - Device dislocation [Recovered/Resolved]
  - Amenorrhoea [None]
  - Device misuse [Recovered/Resolved]
  - Device dislocation [Recovered/Resolved]
  - Faecalith [Recovered/Resolved]

NARRATIVE: CASE EVENT DATE: 20100414
